FAERS Safety Report 9731985 (Version 4)
Quarter: 2013Q4

REPORT INFORMATION
  Report Type: Spontaneous
  Country: JP (occurrence: JP)
  Receive Date: 20131204
  Receipt Date: 20131210
  Transmission Date: 20140711
  Serious: Yes (Other)
  Sender: FDA-Public Use
  Company Number: JP-PFIZER INC-2013334587

PATIENT
  Age: 46 Year
  Sex: Female

DRUGS (2)
  1. CHAMPIX [Suspect]
     Indication: SMOKING CESSATION THERAPY
     Dosage: 1 TO 2 MG, 1 TO 2X/DAY
     Route: 048
     Dates: start: 20130722, end: 20130729
  2. CHAMPIX [Suspect]
     Dosage: 2 MG, 2X/DAY
     Route: 048
     Dates: start: 20130730

REACTIONS (7)
  - Personality change [Recovering/Resolving]
  - Nightmare [Recovered/Resolved]
  - Homicidal ideation [Unknown]
  - Hyperacusis [Unknown]
  - Parosmia [Unknown]
  - Insomnia [Unknown]
  - Abnormal behaviour [Unknown]
